FAERS Safety Report 19079687 (Version 1)
Quarter: 2021Q1

REPORT INFORMATION
  Report Type: Spontaneous
  Country: US (occurrence: US)
  Receive Date: 20210331
  Receipt Date: 20210331
  Transmission Date: 20210420
  Serious: Yes (Hospitalization, Other)
  Sender: FDA-Public Use
  Company Number: US-GLENMARK PHARMACEUTICALS-2021GMK053039

PATIENT
  Age: 45 Year
  Sex: Female

DRUGS (2)
  1. SULFAMETHOXAZOLE/TRIMETHOPRIM [Suspect]
     Active Substance: SULFAMETHOXAZOLE\TRIMETHOPRIM
     Indication: ARTHROPOD BITE
     Dosage: 5 MILLILITRE, BID (12 HOURS) (FORMULATION: SUSPENSION)
     Route: 048
  2. DOXYCYCLINE. [Concomitant]
     Active Substance: DOXYCYCLINE
     Indication: ENDOMETRITIS
     Dosage: 1 (TOTAL)
     Route: 065

REACTIONS (2)
  - Granulomatous liver disease [Unknown]
  - Cholestasis [Unknown]
